FAERS Safety Report 4987496-1 (Version None)
Quarter: 2006Q2

REPORT INFORMATION
  Report Type: 
  Country: None (occurrence: None)
  Receive Date: 20060501
  Receipt Date: 20051123
  Transmission Date: 20061013
  Serious: Yes (Hospitalization)
  Sender: FDA-Public Use
  Company Number: US-MERCK-0511USA04367

PATIENT
  Age: 47 Year
  Sex: Male
  Weight: 86 kg

DRUGS (14)
  1. VIOXX [Suspect]
     Indication: TENDONITIS
     Route: 048
     Dates: start: 20010226, end: 20010303
  2. VIOXX [Suspect]
     Route: 048
     Dates: start: 20010304, end: 20040930
  3. VIOXX [Suspect]
     Indication: ARTHRALGIA
     Route: 048
     Dates: start: 20010226, end: 20010303
  4. VIOXX [Suspect]
     Route: 048
     Dates: start: 20010304, end: 20040930
  5. VIAGRA [Concomitant]
     Indication: ERECTILE DYSFUNCTION
     Route: 048
  6. PRINZIDE [Concomitant]
     Indication: HYPERTENSION
     Route: 048
  7. MEVACOR [Concomitant]
     Indication: BLOOD CHOLESTEROL INCREASED
     Route: 048
     Dates: start: 20000612, end: 20040204
  8. HYDROCODONE BITARTRATE [Concomitant]
     Route: 048
  9. [THERAPY UNSPECIFIED] [Concomitant]
     Route: 048
  10. ACCUPRIL [Concomitant]
     Indication: HYPERTENSION
     Route: 048
     Dates: start: 20020907, end: 20030628
  11. CLARINEX [Concomitant]
     Indication: SINUSITIS
     Route: 048
  12. AMOXICILLIN [Concomitant]
     Route: 048
  13. CEPHALEXIN [Concomitant]
     Route: 048
  14. DIOVAN [Concomitant]
     Route: 065

REACTIONS (7)
  - CEREBROVASCULAR ACCIDENT [None]
  - DIARRHOEA [None]
  - HYPERTENSION [None]
  - LACUNAR INFARCTION [None]
  - MITRAL VALVE INCOMPETENCE [None]
  - VENTRICULAR HYPERTROPHY [None]
  - VOMITING [None]
